FAERS Safety Report 17783756 (Version 1)
Quarter: 2020Q2

REPORT INFORMATION
  Report Type: Spontaneous
  Country: CA (occurrence: CA)
  Receive Date: 20200514
  Receipt Date: 20200514
  Transmission Date: 20200714
  Serious: Yes (Other)
  Sender: FDA-Public Use
  Company Number: CA-PFIZER INC-2020191797

PATIENT
  Age: 72 Year
  Sex: Female

DRUGS (1)
  1. TOVIAZ [Suspect]
     Active Substance: FESOTERODINE FUMARATE
     Indication: HYPERTONIC BLADDER
     Route: 048

REACTIONS (8)
  - Mental disorder [Unknown]
  - Cardiac disorder [Unknown]
  - Drug ineffective [Unknown]
  - Depression [Unknown]
  - Type 2 diabetes mellitus [Unknown]
  - Anxiety [Unknown]
  - Hypertension [Unknown]
  - Osteoporosis [Unknown]
